FAERS Safety Report 11312098 (Version 1)
Quarter: 2015Q3

REPORT INFORMATION
  Report Type: Spontaneous
  Country: FR (occurrence: FR)
  Receive Date: 20150727
  Receipt Date: 20150727
  Transmission Date: 20151125
  Serious: Yes (Other)
  Sender: FDA-Public Use
  Company Number: FR-TEVA-580733ISR

PATIENT
  Age: 78 Year
  Sex: Female

DRUGS (4)
  1. ESCITALOPRAM [Concomitant]
     Active Substance: ESCITALOPRAM OXALATE
     Dosage: .25 DOSAGE FORMS DAILY;
  2. VITAFLOR [Concomitant]
  3. VITAMINE D [Concomitant]
     Dosage: IN THE MORNING
  4. ACIDE ALENDRONIQUE TEVA SANTE [Suspect]
     Active Substance: ALENDRONIC ACID
     Indication: OSTEOPOROSIS
     Dosage: STARTED FIVE MONTHS EARLIER

REACTIONS (3)
  - Haemorrhagic diathesis [Not Recovered/Not Resolved]
  - Oesophageal disorder [Not Recovered/Not Resolved]
  - Decreased appetite [Not Recovered/Not Resolved]

NARRATIVE: CASE EVENT DATE: 2015
